FAERS Safety Report 8090485-4 (Version None)
Quarter: 2012Q1

REPORT INFORMATION
  Report Type: 
  Country: None (occurrence: None)
  Receive Date: 20120129
  Receipt Date: 20111101
  Transmission Date: 20120608
  Serious: No
  Sender: FDA-Public Use
  Company Number: US-ABBOTT-11P-163-0871080-00

PATIENT
  Sex: Female
  Weight: 90.8 kg

DRUGS (5)
  1. HUMIRA [Suspect]
     Route: 058
     Dates: start: 20101201
  2. SULFASALAZINE [Concomitant]
     Indication: ANKYLOSING SPONDYLITIS
  3. HUMIRA [Suspect]
     Route: 058
     Dates: start: 20100501, end: 20101001
  4. HUMIRA [Suspect]
     Indication: ANKYLOSING SPONDYLITIS
     Route: 058
     Dates: start: 20090301, end: 20100501
  5. PLAQUENIL [Concomitant]
     Indication: ANKYLOSING SPONDYLITIS

REACTIONS (5)
  - COUGH [None]
  - RHINITIS [None]
  - RHINORRHOEA [None]
  - PAIN [None]
  - DRUG INEFFECTIVE [None]
